FAERS Safety Report 5299007-4 (Version None)
Quarter: 2007Q2

REPORT INFORMATION
  Report Type: 
  Country: None (occurrence: None)
  Receive Date: 20070417
  Receipt Date: 20070411
  Transmission Date: 20071010
  Serious: Yes (Other)
  Sender: FDA-Public Use
  Company Number: US-AVENTIS-200712565US

PATIENT
  Age: 30 Year
  Sex: Male

DRUGS (4)
  1. KETEK [Suspect]
     Indication: SINUSITIS
     Dosage: DOSE: UNK
     Route: 048
     Dates: start: 20070101
  2. SINGULAIR [Concomitant]
     Dosage: DOSE: UNK
  3. ALLEGRA [Concomitant]
     Dosage: DOSE: UNK
  4. AVELOX [Concomitant]
     Dosage: DOSE: UNK

REACTIONS (4)
  - ALANINE AMINOTRANSFERASE INCREASED [None]
  - ASPARTATE AMINOTRANSFERASE INCREASED [None]
  - HEPATIC ENZYME INCREASED [None]
  - PRURITUS [None]
